FAERS Safety Report 5819534-8 (Version None)
Quarter: 2008Q3

REPORT INFORMATION
  Report Type: 
  Country: None (occurrence: None)
  Receive Date: 20080723
  Receipt Date: 20080708
  Transmission Date: 20090109
  Serious: Yes (Other)
  Sender: FDA-Public Use
  Company Number: JP-GENENTECH-264625

PATIENT
  Age: 23 Week
  Sex: Female

DRUGS (1)
  1. AVASTIN [Suspect]
     Indication: RETINOPATHY OF PREMATURITY
     Dosage: 0.4 MG, UNK
     Route: 031

REACTIONS (2)
  - EYE DISORDER [None]
  - RETINAL DETACHMENT [None]
